FAERS Safety Report 4335614-0 (Version None)
Quarter: 2004Q2

REPORT INFORMATION
  Report Type: 
  Country: None (occurrence: None)
  Receive Date: 20040409
  Receipt Date: 20040402
  Transmission Date: 20050107
  Serious: Yes (Other)
  Sender: FDA-Public Use
  Company Number: US-MERCK-0404USA00329

PATIENT

DRUGS (1)
  1. ZOCOR [Suspect]
     Route: 048

REACTIONS (5)
  - ARTHRALGIA [None]
  - BACK DISORDER [None]
  - HEADACHE [None]
  - HYPOAESTHESIA [None]
  - PAIN IN EXTREMITY [None]
